FAERS Safety Report 6353627-4 (Version None)
Quarter: 2009Q3

REPORT INFORMATION
  Report Type: 
  Country: None (occurrence: None)
  Receive Date: 20090912
  Receipt Date: 20090622
  Transmission Date: 20100115
  Serious: No
  Sender: FDA-Public Use
  Company Number: US-ABBOTT-08P-163-0477605-00

PATIENT
  Sex: Female
  Weight: 41.768 kg

DRUGS (8)
  1. HUMIRA [Suspect]
     Indication: CROHN'S DISEASE
     Dosage: 4 SHOTS, LOADING DOSE
     Route: 050
     Dates: start: 20080905
  2. HUMIRA [Suspect]
  3. PUYRENPHOL [Concomitant]
     Indication: CROHN'S DISEASE
     Dosage: 1 PILL
     Route: 048
     Dates: start: 20000101
  4. FOLIC ACID [Concomitant]
     Indication: CROHN'S DISEASE
     Route: 048
     Dates: start: 20030101
  5. LEVOTHYROXINE SODIUM [Concomitant]
     Indication: HYPOTHYROIDISM
     Dosage: 25 MCG DAILY
     Route: 048
     Dates: start: 20050101
  6. FLUOXETINE [Concomitant]
     Indication: DEPRESSION
     Dosage: 20 MG DAILY
     Route: 048
     Dates: start: 19930101
  7. MESALAZINE [Concomitant]
     Indication: CROHN'S DISEASE
     Dosage: 400 MG TABLETS
     Route: 048
     Dates: start: 19880101
  8. FUROSEMIDE [Concomitant]
     Indication: HEADACHE
     Dosage: 1-2 PILLS DAILY
     Route: 048
     Dates: start: 19780101

REACTIONS (3)
  - DRUG DELIVERY SYSTEM MALFUNCTION [None]
  - INCORRECT DOSE ADMINISTERED [None]
  - INJECTION SITE EXTRAVASATION [None]
